FAERS Safety Report 14382506 (Version 1)
Quarter: 2018Q1

REPORT INFORMATION
  Report Type: Spontaneous
  Country: US (occurrence: US)
  Receive Date: 20180112
  Receipt Date: 20180112
  Transmission Date: 20180509
  Serious: Yes (Other)
  Sender: FDA-Public Use
  Company Number: US-CELGENEUS-USA-20180101416

PATIENT
  Sex: Female

DRUGS (1)
  1. OTEZLA [Suspect]
     Active Substance: APREMILAST
     Indication: ECZEMA NUMMULAR
     Dosage: 60 MILLIGRAM
     Route: 048
     Dates: start: 20171211

REACTIONS (1)
  - Ovarian cyst ruptured [Unknown]
